FAERS Safety Report 18601695 (Version 5)
Quarter: 2021Q4

REPORT INFORMATION
  Report Type: Report from Study
  Country: AU (occurrence: AU)
  Receive Date: 20201210
  Receipt Date: 20211101
  Transmission Date: 20220303
  Serious: Yes (Other)
  Sender: FDA-Public Use
  Company Number: NVSC2020AU324255

PATIENT
  Age: 74 Year
  Sex: Female

DRUGS (2)
  1. BEOVU [Suspect]
     Active Substance: BROLUCIZUMAB-DBLL
     Indication: Neovascular age-related macular degeneration
     Dosage: UNK
     Route: 065
  2. BEOVU [Suspect]
     Active Substance: BROLUCIZUMAB-DBLL
     Dosage: UNK
     Route: 065

REACTIONS (8)
  - Crohn^s disease [Unknown]
  - Vitritis [Recovered/Resolved]
  - Keratic precipitates [Unknown]
  - Benign neoplasm of adrenal gland [Unknown]
  - Eye oedema [Unknown]
  - Eye inflammation [Recovered/Resolved]
  - Vitreous floaters [Unknown]
  - Visual acuity reduced [Unknown]

NARRATIVE: CASE EVENT DATE: 20201202
